FAERS Safety Report 8075197-5 (Version None)
Quarter: 2012Q1

REPORT INFORMATION
  Report Type: 
  Country: None (occurrence: None)
  Receive Date: 20120127
  Receipt Date: 20120118
  Transmission Date: 20120608
  Serious: Yes (Other)
  Sender: FDA-Public Use
  Company Number: FR-PAR PHARMACEUTICAL, INC-2012SCPR003903

PATIENT

DRUGS (7)
  1. CLOFARABINE [Suspect]
     Dosage: 30 MG/M2, / DAY FOR 5 DAYS
  2. CLOFARABINE [Suspect]
     Indication: ACUTE LYMPHOCYTIC LEUKAEMIA
     Dosage: 30 MG/M2, / DAY FOR 5 DAYS
     Route: 065
  3. FLUDARABINE [Suspect]
     Indication: BONE MARROW CONDITIONING REGIMEN
     Dosage: 90 MG/M2, UNKNOWN
     Route: 065
  4. VINCRISTINE [Concomitant]
     Indication: ACUTE LYMPHOCYTIC LEUKAEMIA RECURRENT
     Dosage: SIX WEEKLY
     Route: 051
  5. MYCOPHENOLATE MOFETIL [Concomitant]
     Indication: PROPHYLAXIS AGAINST GRAFT VERSUS HOST DISEASE
     Dosage: UNK, UNKNOWN
     Route: 065
  6. DEXAMETHASONE [Suspect]
     Indication: ACUTE LYMPHOCYTIC LEUKAEMIA RECURRENT
     Dosage: 4-DAY COURSE WITH THE FIRST 4 INJECTIONS OF VINCRISTINE
     Route: 065
  7. CYCLOSPORINE [Suspect]
     Indication: PROPHYLAXIS AGAINST GRAFT VERSUS HOST DISEASE
     Dosage: UNK, UNKNOWN
     Route: 065

REACTIONS (3)
  - SPINAL FRACTURE [None]
  - GRAFT VERSUS HOST DISEASE [None]
  - OSTEOPOROTIC FRACTURE [None]
